FAERS Safety Report 4986586-7 (Version None)
Quarter: 2006Q2

REPORT INFORMATION
  Report Type: 
  Country: None (occurrence: None)
  Receive Date: 20060428
  Receipt Date: 20060418
  Transmission Date: 20061013
  Serious: Yes (Death)
  Sender: FDA-Public Use
  Company Number: US-JNJFOC-20060404129

PATIENT
  Age: 28 Year
  Sex: Female

DRUGS (3)
  1. RISPERDAL CONSTA [Suspect]
     Route: 030
     Dates: start: 20050101
  2. RISPERDAL CONSTA [Suspect]
     Route: 030
     Dates: start: 20050101
  3. SEROQUEL [Concomitant]
     Route: 048

REACTIONS (3)
  - DEATH [None]
  - DYSKINESIA [None]
  - PSYCHOTIC DISORDER [None]
